FAERS Safety Report 5873889-7 (Version None)
Quarter: 2008Q3

REPORT INFORMATION
  Report Type: 
  Country: None (occurrence: None)
  Receive Date: 20080908
  Receipt Date: 20080902
  Transmission Date: 20090109
  Serious: Yes (Disabling, Other)
  Sender: FDA-Public Use
  Company Number: GB-ASTRAZENECA-2008GB01660

PATIENT
  Age: 55 Year
  Sex: Male

DRUGS (3)
  1. ROSUVASTATIN CALCIUM [Suspect]
     Indication: BLOOD CHOLESTEROL INCREASED
     Dosage: 20MG
     Route: 048
     Dates: start: 20070301, end: 20080701
  2. CETIRIZINE HCL [Concomitant]
     Indication: SEASONAL ALLERGY
     Route: 048
     Dates: start: 20080101
  3. IBUPROFEN [Concomitant]
     Indication: ARTHRALGIA
     Dosage: 600MG
     Route: 048
     Dates: start: 20050101

REACTIONS (4)
  - HYPERHIDROSIS [None]
  - MALAISE [None]
  - MYOSITIS [None]
  - RED BLOOD CELL SEDIMENTATION RATE INCREASED [None]
